FAERS Safety Report 6103789-9 (Version None)
Quarter: 2009Q1

REPORT INFORMATION
  Report Type: 
  Country: None (occurrence: None)
  Receive Date: 20090305
  Receipt Date: 20090304
  Transmission Date: 20090719
  Serious: Yes (Other)
  Sender: FDA-Public Use
  Company Number: IT-JNJFOC-20090300711

PATIENT
  Age: 59 Year
  Sex: Female

DRUGS (1)
  1. LEVOXACIN [Suspect]
     Indication: CYSTITIS
     Dosage: TOTAL DAILY DOSE
     Route: 048

REACTIONS (6)
  - ANXIETY [None]
  - PARAESTHESIA ORAL [None]
  - PERIPHERAL COLDNESS [None]
  - SWOLLEN TONGUE [None]
  - THROAT IRRITATION [None]
  - URTICARIA [None]
